FAERS Safety Report 16243248 (Version 4)
Quarter: 2023Q1

REPORT INFORMATION
  Report Type: Spontaneous
  Country: GB (occurrence: GB)
  Receive Date: 20190426
  Receipt Date: 20230207
  Transmission Date: 20230418
  Serious: Yes (Hospitalization, Other)
  Sender: FDA-Public Use
  Company Number: GB-LDELTA-NLLD0031612

PATIENT
  Age: 55 Year
  Sex: Male

DRUGS (18)
  1. ATORVASTATIN CALCIUM [Suspect]
     Active Substance: ATORVASTATIN CALCIUM
     Dosage: 120 MG, QD (TOOK 3 DAYS WORTH OF MEDICATION - OVERDOSE)
     Route: 005
     Dates: start: 20190327, end: 20190327
  2. ATORVASTATIN CALCIUM [Suspect]
     Active Substance: ATORVASTATIN CALCIUM
     Dosage: 120 MG, QD (TOOK 3 DAYS WORTH OF MEDICATION - OVERDOSE)
     Route: 005
     Dates: start: 20190327, end: 20190327
  3. RAMIPRIL [Suspect]
     Active Substance: RAMIPRIL
     Dosage: 7.5 MG, QD (TOOK 3 DAYS WORTH OF MEDICATION - OVERDOSE)
     Route: 065
     Dates: start: 20190327, end: 20190327
  4. CLOZAPINE [Suspect]
     Active Substance: CLOZAPINE
     Dosage: 1 G, QD
     Route: 048
     Dates: start: 20050805, end: 201808
  5. CLOZAPINE [Suspect]
     Active Substance: CLOZAPINE
     Dosage: UNK
     Route: 048
     Dates: start: 20180828, end: 201811
  6. CLOZAPINE [Suspect]
     Active Substance: CLOZAPINE
     Dosage: UNK
     Route: 048
     Dates: start: 20181120, end: 201901
  7. CLOZAPINE [Suspect]
     Active Substance: CLOZAPINE
     Dosage: UNK
     Route: 048
     Dates: start: 2019
  8. CLOZAPINE [Suspect]
     Active Substance: CLOZAPINE
     Dosage: UNK
     Route: 048
     Dates: start: 20190116, end: 201903
  9. CLOZAPINE [Suspect]
     Active Substance: CLOZAPINE
     Dosage: 1 G (TOOK 3 DAYS WORTH OF MEDICATION - OVERDOSE)
     Route: 048
     Dates: start: 20190327, end: 20190327
  10. CLOZAPINE [Suspect]
     Active Substance: CLOZAPINE
     Dosage: 1 GRAM, QD (TOOK 3 DAYS WORTH OF MEDICATION)
     Route: 048
     Dates: start: 20190317, end: 20190317
  11. CLOZAPINE [Suspect]
     Active Substance: CLOZAPINE
     Dosage: UNK
     Dates: start: 19900731, end: 20050804
  12. CLOZAPINE [Suspect]
     Active Substance: CLOZAPINE
     Dosage: UNK
     Route: 048
     Dates: start: 20050805, end: 200508
  13. CLOZAPINE [Suspect]
     Active Substance: CLOZAPINE
     Dosage: UNK
     Route: 065
  14. CLOZAPINE [Suspect]
     Active Substance: CLOZAPINE
     Dosage: 1 GRAM, QD
     Route: 065
     Dates: start: 20180805
  15. CLOZAPINE [Suspect]
     Active Substance: CLOZAPINE
     Dosage: UNK
     Route: 048
     Dates: start: 20181126, end: 201901
  16. CLOZAPINE [Suspect]
     Active Substance: CLOZAPINE
     Dosage: UNK
     Route: 048
     Dates: start: 20180826, end: 201811
  17. METFORMIN HYDROCHLORIDE [Suspect]
     Active Substance: METFORMIN HYDROCHLORIDE
     Dosage: 3 G, QD (TOOK 3 DAYS WORTH OF MEDICATION - OVERDOSE)
     Route: 065
     Dates: start: 20190327, end: 20190327
  18. METFORMIN HYDROCHLORIDE [Suspect]
     Active Substance: METFORMIN HYDROCHLORIDE
     Dosage: 3 G, QD (TOOK 3 DAYS WORTH OF MEDICATION - OVERDOSE)
     Route: 065
     Dates: start: 20190327, end: 20190327

REACTIONS (14)
  - Overdose [Recovered/Resolved]
  - Drug abuse [Unknown]
  - Medication error [Unknown]
  - Off label use [Unknown]
  - Body temperature decreased [Recovered/Resolved]
  - Pneumonia aspiration [Recovering/Resolving]
  - Tachycardia [Recovered/Resolved]
  - Blood glucose decreased [Recovered/Resolved]
  - Metabolic acidosis [Recovered/Resolved]
  - Tricuspid valve incompetence [Unknown]
  - Hypotension [Recovered/Resolved]
  - Neutrophil count increased [Unknown]
  - White blood cell count increased [Unknown]
  - Intentional product misuse [Unknown]

NARRATIVE: CASE EVENT DATE: 20190301
